FAERS Safety Report 4871688-6 (Version None)
Quarter: 2005Q4

REPORT INFORMATION
  Report Type: 
  Country: None (occurrence: None)
  Receive Date: 20051230
  Receipt Date: 20051221
  Transmission Date: 20060501
  Serious: Yes (Hospitalization)
  Sender: FDA-Public Use
  Company Number: 2005RR-01377

PATIENT
  Age: 62 Year
  Sex: Female

DRUGS (3)
  1. LISINOPRIL [Suspect]
     Dosage: 15 MG, UNK, ORAL
     Route: 048
     Dates: start: 19980101
  2. METFORMIN HYDROCHLORIDE [Suspect]
     Dosage: 500 MG
  3. WARFARIN SODIUM [Concomitant]

REACTIONS (7)
  - BLOOD PRESSURE INCREASED [None]
  - DIARRHOEA [None]
  - DIZZINESS [None]
  - GAIT DISTURBANCE [None]
  - MIGRAINE [None]
  - MUSCLE SPASMS [None]
  - VISUAL DISTURBANCE [None]
